FAERS Safety Report 25746626 (Version 2)
Quarter: 2025Q4

REPORT INFORMATION
  Report Type: Spontaneous
  Country: US (occurrence: US)
  Receive Date: 20250901
  Receipt Date: 20251105
  Transmission Date: 20260118
  Serious: No
  Sender: GRANULES PHARMACEUTICALS INC
  Company Number: US-GRANULES-US-2025GRASPO00452

PATIENT
  Age: 75 Year
  Sex: Female
  Weight: 138 kg

DRUGS (1)
  1. ACETAMINOPHEN [Suspect]
     Active Substance: ACETAMINOPHEN
     Indication: Product used for unknown indication
     Route: 048
     Dates: start: 202508

REACTIONS (3)
  - Mouth injury [Recovered/Resolved]
  - Mouth haemorrhage [Recovered/Resolved]
  - Product contamination physical [Unknown]

NARRATIVE: CASE EVENT DATE: 20250801
